FAERS Safety Report 5882984-8 (Version None)
Quarter: 2008Q3

REPORT INFORMATION
  Report Type: 
  Country: None (occurrence: None)
  Receive Date: 20080913
  Receipt Date: 20080826
  Transmission Date: 20090109
  Serious: Yes (Hospitalization)
  Sender: FDA-Public Use
  Company Number: US-ABBOTT-08P-163-0472467-00

PATIENT
  Sex: Female
  Weight: 70.37 kg

DRUGS (8)
  1. HUMIRA [Suspect]
     Indication: RHEUMATOID ARTHRITIS
     Route: 058
     Dates: start: 20060101, end: 20080410
  2. HUMIRA [Suspect]
     Route: 058
     Dates: start: 20080514, end: 20080617
  3. HUMIRA [Suspect]
     Route: 058
     Dates: start: 20080624
  4. ANTIVERT [Concomitant]
     Indication: MENIERE'S DISEASE
     Route: 048
     Dates: start: 20080711
  5. METHOTREXATE [Concomitant]
     Indication: RHEUMATOID ARTHRITIS
     Route: 048
     Dates: start: 20060101
  6. FOLIC ACID [Concomitant]
     Indication: VITAMIN SUPPLEMENTATION
     Route: 048
     Dates: start: 20060101
  7. MULTI-VITAMIN [Concomitant]
     Indication: VITAMIN SUPPLEMENTATION
     Route: 048
  8. BIRTH CONTROL PILLS [Concomitant]
     Indication: PROPHYLAXIS
     Route: 048

REACTIONS (8)
  - ABASIA [None]
  - C-REACTIVE PROTEIN INCREASED [None]
  - EAR DISCOMFORT [None]
  - MOBILITY DECREASED [None]
  - PAIN [None]
  - PNEUMONIA BACTERIAL [None]
  - TINNITUS [None]
  - VERTIGO [None]
